FAERS Safety Report 19589686 (Version 1)
Quarter: 2021Q3

REPORT INFORMATION
  Report Type: Spontaneous
  Country: US (occurrence: US)
  Receive Date: 20210721
  Receipt Date: 20210721
  Transmission Date: 20211014
  Serious: Yes (Life-Threatening, Other)
  Sender: FDA-Public Use
  Company Number: US-ASTRAZENECA-2021A628916

PATIENT
  Age: 22740 Day
  Weight: 74.8 kg

DRUGS (2)
  1. NEXIUM [Suspect]
     Active Substance: ESOMEPRAZOLE MAGNESIUM
     Indication: HIATUS HERNIA
     Route: 048
  2. NEXIUM [Suspect]
     Active Substance: ESOMEPRAZOLE MAGNESIUM
     Indication: GASTROOESOPHAGEAL REFLUX DISEASE
     Route: 048

REACTIONS (6)
  - Dyspepsia [Unknown]
  - Post procedural complication [Not Recovered/Not Resolved]
  - Product substitution issue [Unknown]
  - Myocardial infarction [Unknown]
  - Cardiac arrest [Unknown]
  - Off label use [Unknown]

NARRATIVE: CASE EVENT DATE: 20190825
